FAERS Safety Report 9090457 (Version 1)
Quarter: 2013Q1

REPORT INFORMATION
  Report Type: Report from Study
  Country: US (occurrence: US)
  Receive Date: 20130218
  Receipt Date: 20130218
  Transmission Date: 20140127
  Serious: No
  Sender: FDA-Public Use
  Company Number: US-ABBOTT-12P-163-0919524-00

PATIENT
  Sex: Male
  Weight: 84.9 kg

DRUGS (2)
  1. SIMCOR 1000MG/20MG [Suspect]
     Indication: BLOOD CHOLESTEROL INCREASED
     Dosage: 1000/20 MG AT BEDTIME
     Dates: start: 201003
  2. WARFARIN [Concomitant]
     Indication: PRODUCT USED FOR UNKNOWN INDICATION

REACTIONS (3)
  - Diabetes mellitus [Recovered/Resolved]
  - Weight decreased [Recovered/Resolved]
  - Skin burning sensation [Recovered/Resolved]
